FAERS Safety Report 17580095 (Version 2)
Quarter: 2021Q1

REPORT INFORMATION
  Report Type: Spontaneous
  Country: AT (occurrence: AT)
  Receive Date: 20200325
  Receipt Date: 20210317
  Transmission Date: 20210419
  Serious: Yes (Other)
  Sender: FDA-Public Use
  Company Number: AT-PFIZER INC-2020092552

PATIENT
  Age: 71 Year
  Sex: Female

DRUGS (4)
  1. IBRANCE [Suspect]
     Active Substance: PALBOCICLIB
     Indication: CHRONIC MYELOID LEUKAEMIA
     Dosage: 125 MG, DAILY
     Dates: start: 2020
  2. PONATINIB [Suspect]
     Active Substance: PONATINIB
     Indication: CHRONIC MYELOID LEUKAEMIA
     Dosage: 45 MG, DAILY
     Dates: start: 2020
  3. IBRANCE [Suspect]
     Active Substance: PALBOCICLIB
     Dosage: 100 MG, DAILY
     Dates: start: 2020
  4. PONATINIB [Suspect]
     Active Substance: PONATINIB
     Dosage: 30 MG, DAILY
     Dates: start: 2020

REACTIONS (9)
  - Cancer pain [Unknown]
  - Abdominal pain upper [Unknown]
  - Asthenia [Unknown]
  - Pancytopenia [Unknown]
  - Off label use [Unknown]
  - Neoplasm progression [Unknown]
  - Malaise [Unknown]
  - Leukopenia [Recovered/Resolved]
  - Neutropenia [Recovered/Resolved]

NARRATIVE: CASE EVENT DATE: 2020
